FAERS Safety Report 7827725-X (Version None)
Quarter: 2011Q4

REPORT INFORMATION
  Report Type: 
  Country: None (occurrence: None)
  Receive Date: 20111020
  Receipt Date: 20111018
  Transmission Date: 20120403
  Serious: Yes (Other)
  Sender: FDA-Public Use
  Company Number: US-PFIZER INC-2011250806

PATIENT
  Sex: Female
  Weight: 49.887 kg

DRUGS (5)
  1. PLAVIX [Concomitant]
     Indication: CEREBROVASCULAR ACCIDENT
     Dosage: UNK
  2. ACETYLSALICYLIC ACID [Concomitant]
     Indication: ANTICOAGULANT THERAPY
     Dosage: UNK
  3. PROPRANOLOL [Concomitant]
     Indication: HYPERTENSION
     Dosage: UNK
  4. PROCARDIA XL [Suspect]
     Indication: CARDIAC DISORDER
     Dosage: 30 MG, 1X/DAY
     Route: 048
     Dates: start: 19910101, end: 20111015
  5. AMIODARONE [Concomitant]
     Indication: HEART RATE IRREGULAR
     Dosage: UNK

REACTIONS (3)
  - SPINAL COLUMN STENOSIS [None]
  - BLOOD CHOLESTEROL INCREASED [None]
  - CARDIAC ARREST [None]
